FAERS Safety Report 18498648 (Version 1)
Quarter: 2020Q4

REPORT INFORMATION
  Report Type: Spontaneous
  Country: AU (occurrence: AU)
  Receive Date: 20201112
  Receipt Date: 20201112
  Transmission Date: 20210114
  Serious: Yes (Other)
  Sender: FDA-Public Use
  Company Number: AU-FERRINGPH-2020FE07722

PATIENT
  Age: 60 Year
  Sex: Female

DRUGS (2)
  1. MINIRIN [Suspect]
     Active Substance: DESMOPRESSIN ACETATE
     Indication: DIABETES INSIPIDUS
     Dosage: UNK
     Route: 065
     Dates: start: 201901, end: 201901
  2. MINIRIN [Suspect]
     Active Substance: DESMOPRESSIN ACETATE
     Indication: DIABETES INSIPIDUS
     Dosage: UNK
     Route: 065
     Dates: start: 201901, end: 201901

REACTIONS (3)
  - Anaphylactic reaction [Unknown]
  - Out of specification product use [Unknown]
  - Recalled product administered [Unknown]

NARRATIVE: CASE EVENT DATE: 201901
